FAERS Safety Report 5971489-1 (Version None)
Quarter: 2008Q4

REPORT INFORMATION
  Report Type: 
  Country: None (occurrence: None)
  Receive Date: 20081201
  Receipt Date: 20081125
  Transmission Date: 20090506
  Serious: Yes (Hospitalization)
  Sender: FDA-Public Use
  Company Number: PL-BRISTOL-MYERS SQUIBB COMPANY-14352058

PATIENT
  Age: 50 Year
  Sex: Female

DRUGS (4)
  1. ABILIFY [Suspect]
     Indication: SCHIZOPHRENIA, PARANOID TYPE
     Dosage: STILL RECEIVES 30MG DAILY.
     Route: 048
     Dates: start: 20080108
  2. TEGRETOL [Concomitant]
     Dates: start: 20080428
  3. NEUROTOP RETARD [Concomitant]
  4. CARBAMAZEPINE [Concomitant]

REACTIONS (2)
  - HALLUCINATION, AUDITORY [None]
  - SUICIDE ATTEMPT [None]
